FAERS Safety Report 8850962 (Version 1)
Quarter: 2012Q4

REPORT INFORMATION
  Report Type: 
  Country: US (occurrence: US)
  Receive Date: 20121019
  Receipt Date: 20121019
  Transmission Date: 20130627
  Serious: Yes (Other)
  Sender: FDA-Public Use
  Company Number: US-JNJFOC-20111011173

PATIENT
  Sex: Female

DRUGS (4)
  1. LEVAQUIN [Suspect]
     Indication: BRONCHITIS
     Route: 048
  2. LEVAQUIN [Suspect]
     Indication: CHRONIC OBSTRUCTIVE PULMONARY DISEASE
     Route: 048
  3. METHYLPREDNISOLONE [Suspect]
     Indication: LARYNGITIS
     Route: 065
  4. METHYLPREDNISOLONE [Suspect]
     Indication: CHRONIC OBSTRUCTIVE PULMONARY DISEASE
     Route: 065

REACTIONS (4)
  - Tendon rupture [Unknown]
  - Rotator cuff syndrome [Unknown]
  - Neuropathy peripheral [Unknown]
  - Tendonitis [Unknown]
